FAERS Safety Report 7704440-4 (Version None)
Quarter: 2011Q3

REPORT INFORMATION
  Report Type: 
  Country: None (occurrence: None)
  Receive Date: 20110823
  Receipt Date: 20110817
  Transmission Date: 20111222
  Serious: Yes (Death, Other)
  Sender: FDA-Public Use
  Company Number: FR-CEPHALON-2011003225

PATIENT
  Sex: Female

DRUGS (1)
  1. ACTIQ [Suspect]
     Indication: PAIN
     Route: 002

REACTIONS (2)
  - DISEASE PROGRESSION [None]
  - DRUG PRESCRIBING ERROR [None]
